FAERS Safety Report 25180002 (Version 1)
Quarter: 2025Q2

REPORT INFORMATION
  Report Type: Spontaneous
  Country: US (occurrence: None)
  Receive Date: 20250409
  Receipt Date: 20250409
  Transmission Date: 20250717
  Serious: Yes (Hospitalization)
  Sender: FDA-CTU
  Company Number: None

PATIENT
  Age: 84 Year
  Sex: Male

DRUGS (1)
  1. LEVOFLOXACIN [Suspect]
     Active Substance: LEVOFLOXACIN
     Indication: Infection
     Dates: end: 20250321

REACTIONS (6)
  - Asthenia [None]
  - Mental status changes [None]
  - Hallucination, visual [None]
  - Device related infection [None]
  - Urinary tract infection [None]
  - Citrobacter test positive [None]

NARRATIVE: CASE EVENT DATE: 20210320
